FAERS Safety Report 24641380 (Version 1)
Quarter: 2024Q4

REPORT INFORMATION
  Report Type: Report from Study
  Country: US (occurrence: US)
  Receive Date: 20241120
  Receipt Date: 20241120
  Transmission Date: 20250114
  Serious: Yes (Other)
  Sender: HRA PHARMA
  Company Number: US-ORG100014127-2024000322

PATIENT
  Age: 31 Year
  Sex: Female

DRUGS (4)
  1. LYSODREN [Suspect]
     Active Substance: MITOTANE
     Indication: Adrenal gland cancer
     Dosage: 03 TABLETS (1500G) TWICE DAILY
     Route: 048
     Dates: start: 20230616
  2. HYDROCORT Tab 5 mg [Concomitant]
     Indication: Product used for unknown indication
  3. Ondansetron 4mg ODT [Concomitant]
     Indication: Product used for unknown indication
  4. PANTOPRAZOLE [Concomitant]
     Active Substance: PANTOPRAZOLE
     Indication: Product used for unknown indication

REACTIONS (2)
  - Ectopic pregnancy [Unknown]
  - Exposure during pregnancy [Recovered/Resolved]
